FAERS Safety Report 14945214 (Version 29)
Quarter: 2021Q3

REPORT INFORMATION
  Report Type: Other
  Country: DE (occurrence: DE)
  Receive Date: 20180529
  Receipt Date: 20210927
  Transmission Date: 20211014
  Serious: Yes (Hospitalization, Other)
  Sender: FDA-Public Use
  Company Number: DE-ROCHE-2121184

PATIENT
  Age: 50 Year
  Sex: Female

DRUGS (38)
  1. OCREVUS [Suspect]
     Active Substance: OCRELIZUMAB
     Dosage: NEXT DOSE ON 09/JUN/2020
     Route: 042
     Dates: start: 20181106
  2. BACLOFEN. [Concomitant]
     Active Substance: BACLOFEN
     Dosage: 2?2?3
  3. BACLOFEN. [Concomitant]
     Active Substance: BACLOFEN
  4. BACLOFENUM [Concomitant]
     Indication: MUSCLE SPASTICITY
     Dosage: 25 MG
     Route: 065
  5. DICLOFENAC [Suspect]
     Active Substance: DICLOFENAC
     Indication: ARTHRALGIA
     Route: 054
  6. BACLOFEN. [Concomitant]
     Active Substance: BACLOFEN
     Indication: MUSCLE SPASTICITY
  7. BACLOFEN. [Concomitant]
     Active Substance: BACLOFEN
     Dosage: 10 MG ? 15 MG ? 25 MG
  8. BOTOX [Concomitant]
     Active Substance: ONABOTULINUMTOXINA
  9. OCREVUS [Suspect]
     Active Substance: OCRELIZUMAB
     Route: 042
  10. DICLOFENAC [Suspect]
     Active Substance: DICLOFENAC
     Indication: BACK PAIN
     Route: 048
     Dates: start: 20190122
  11. FOLSAN [Concomitant]
     Active Substance: FOLIC ACID
  12. NOVOPULMON [Concomitant]
     Active Substance: BUDESONIDE
     Dosage: 2 HUBS PER DAY
  13. ZINC. [Concomitant]
     Active Substance: ZINC
  14. FOLVERLAN [Concomitant]
     Active Substance: FOLIC ACID
  15. CARBAMAZEPINE. [Concomitant]
     Active Substance: CARBAMAZEPINE
     Dosage: 1?0?0
     Route: 048
  16. ASPIRIN. [Concomitant]
     Active Substance: ASPIRIN
     Route: 048
  17. OCREVUS [Suspect]
     Active Substance: OCRELIZUMAB
     Route: 042
     Dates: start: 20200609
  18. AMITRIPTYLINE [Suspect]
     Active Substance: AMITRIPTYLINE
     Route: 065
  19. DEKRISTOL [Concomitant]
     Active Substance: CHOLECALCIFEROL
     Indication: VITAMIN D DEFICIENCY
  20. ACICLOVIR [Concomitant]
     Active Substance: ACYCLOVIR
     Dosage: UNK, BID (1?0?1 FOR FOUR WEEKS)
  21. CARBAMAZEPINE. [Concomitant]
     Active Substance: CARBAMAZEPINE
     Dosage: 2?0?1
     Dates: start: 20190801
  22. CARBAMAZEPINE. [Concomitant]
     Active Substance: CARBAMAZEPINE
     Dosage: 0?1?0
  23. RAMIPRIL. [Concomitant]
     Active Substance: RAMIPRIL
     Indication: HYPERTENSION
     Dosage: 1?0?0
  24. PANTOPRAZOL [Concomitant]
     Active Substance: PANTOPRAZOLE SODIUM
     Dosage: 1?0?0
     Route: 048
  25. BACLOFEN. [Concomitant]
     Active Substance: BACLOFEN
     Dosage: 15 MG ? 15 MG ? 25 MG
     Route: 048
  26. BACLOFEN. [Concomitant]
     Active Substance: BACLOFEN
     Dosage: 10 MG ? 15 MG ? 25 MG
  27. BACLOFENUM [Concomitant]
     Dosage: 5 MG,0.33 (10 MG ? 5 MG ? 20 MG)
     Route: 048
  28. BACLOFENUM [Concomitant]
     Dosage: UNK (15 MG ? 15 MG ? 25 MG)
     Route: 048
  29. OCREVUS [Suspect]
     Active Substance: OCRELIZUMAB
     Route: 042
     Dates: start: 20201207
  30. MAGNESIUM [Concomitant]
     Active Substance: MAGNESIUM
     Indication: MUSCLE SPASMS
     Dosage: 0?1?0
  31. SELENIUM [Concomitant]
     Active Substance: SELENIUM
  32. ACICLOVIR [Concomitant]
     Active Substance: ACYCLOVIR
     Dosage: 1?0?1 FOR FOUR WEEKS
  33. OCREVUS [Suspect]
     Active Substance: OCRELIZUMAB
     Indication: RELAPSING-REMITTING MULTIPLE SCLEROSIS
     Route: 042
     Dates: start: 20180503, end: 20180503
  34. OCREVUS [Suspect]
     Active Substance: OCRELIZUMAB
     Dosage: SECOND DOSE
     Route: 042
     Dates: start: 20180517, end: 20180517
  35. AMITRIPTYLINE [Suspect]
     Active Substance: AMITRIPTYLINE
     Indication: DEPRESSION
     Dosage: 0?0?1
     Route: 065
  36. RAMIPRIL. [Concomitant]
     Active Substance: RAMIPRIL
     Dosage: 1?0?1
  37. BACLOFEN. [Concomitant]
     Active Substance: BACLOFEN
     Dosage: 10 MG ? 5 MG ? 20 MG
  38. BACLOFENUM [Concomitant]
     Dosage: 75 MG, QD
     Route: 065

REACTIONS (44)
  - Chondropathy [Not Recovered/Not Resolved]
  - Memory impairment [Recovered/Resolved]
  - Norovirus infection [Recovered/Resolved]
  - Headache [Recovered/Resolved]
  - Nausea [Recovered/Resolved]
  - Spinal stenosis [Not Recovered/Not Resolved]
  - Insomnia [Recovered/Resolved]
  - Cholelithiasis [Recovered/Resolved]
  - Drug ineffective [Unknown]
  - Osteoarthritis [Not Recovered/Not Resolved]
  - Terminal insomnia [Recovering/Resolving]
  - White blood cell count decreased [Not Recovered/Not Resolved]
  - Skin laceration [Recovered/Resolved]
  - Urticaria [Recovered/Resolved]
  - Feeling abnormal [Not Recovered/Not Resolved]
  - Pruritus [Recovered/Resolved]
  - Abdominal pain upper [Recovered/Resolved]
  - Dyspepsia [Not Recovered/Not Resolved]
  - Sleep disorder [Not Recovered/Not Resolved]
  - Joint arthroplasty [Recovered/Resolved]
  - Paraesthesia [Recovered/Resolved]
  - Rash [Recovered/Resolved]
  - Back pain [Recovered/Resolved]
  - Fatigue [Recovered/Resolved]
  - Acquired diaphragmatic eventration [Not Recovered/Not Resolved]
  - Chest discomfort [Not Recovered/Not Resolved]
  - Muscle spasticity [Not Recovered/Not Resolved]
  - Neuralgia [Recovered/Resolved]
  - Meniscus injury [Recovered/Resolved]
  - Dyspnoea [Not Recovered/Not Resolved]
  - Infection [Recovered/Resolved]
  - Therapeutic product effect decreased [Recovered/Resolved]
  - Effusion [Not Recovered/Not Resolved]
  - Arthralgia [Not Recovered/Not Resolved]
  - Nasopharyngitis [Not Recovered/Not Resolved]
  - C-reactive protein increased [Recovering/Resolving]
  - Infrapatellar fat pad inflammation [Not Recovered/Not Resolved]
  - Dizziness [Recovered/Resolved]
  - Multiple sclerosis [Not Recovered/Not Resolved]
  - Herpes virus infection [Recovered/Resolved]
  - Sacroiliitis [Not Recovered/Not Resolved]
  - Infusion related reaction [Recovered/Resolved]
  - Migraine [Recovered/Resolved]
  - Sensory disturbance [Not Recovered/Not Resolved]

NARRATIVE: CASE EVENT DATE: 20180503
